FAERS Safety Report 14137645 (Version 1)
Quarter: 2017Q4

REPORT INFORMATION
  Report Type: Spontaneous
  Country: US (occurrence: US)
  Receive Date: 20171027
  Receipt Date: 20171027
  Transmission Date: 20180321
  Serious: Yes (Other)
  Sender: FDA-Public Use
  Company Number: US-BRACCO-2017US04792

PATIENT
  Sex: Female

DRUGS (2)
  1. GADOLINIUM [Suspect]
     Active Substance: GADOLINIUM
     Indication: NUCLEAR MAGNETIC RESONANCE IMAGING
  2. MULTIHANCE [Suspect]
     Active Substance: GADOBENATE DIMEGLUMINE
     Indication: NUCLEAR MAGNETIC RESONANCE IMAGING
     Dosage: UNK, SINGLE

REACTIONS (9)
  - Emotional distress [Unknown]
  - Alopecia [Unknown]
  - Injury [Unknown]
  - Lymphadenopathy [Unknown]
  - Arthralgia [Unknown]
  - Weight decreased [Unknown]
  - Pain [Unknown]
  - Myalgia [Unknown]
  - Gadolinium deposition disease [Unknown]
